FAERS Safety Report 4616415-2 (Version None)
Quarter: 2005Q1

REPORT INFORMATION
  Report Type: 
  Country: None (occurrence: None)
  Receive Date: 20050321
  Receipt Date: 20050309
  Transmission Date: 20050727
  Serious: Yes (Hospitalization, Other)
  Sender: FDA-Public Use
  Company Number: 2005042631

PATIENT
  Sex: Female

DRUGS (4)
  1. ZYRTEC-D 12 HOUR [Suspect]
     Indication: HYPERSENSITIVITY
     Dosage: 1 TABLET DAILY (1 IN 1 D), ORAL
     Route: 048
     Dates: end: 20050214
  2. PANTOPRAZOLE (PANTOPRAZOLE) [Suspect]
     Indication: GASTROOESOPHAGEAL REFLUX DISEASE
  3. MONTELUKAST SODIUM (MONTELUKAST SODIUM) [Concomitant]
  4. FAMOTIDINE [Concomitant]

REACTIONS (7)
  - CONVULSION [None]
  - DRUG SCREEN FALSE POSITIVE [None]
  - FATIGUE [None]
  - MEMORY IMPAIRMENT [None]
  - MOVEMENT DISORDER [None]
  - PAIN [None]
  - TONGUE INJURY [None]
